FAERS Safety Report 24283956 (Version 2)
Quarter: 2025Q1

REPORT INFORMATION
  Report Type: Spontaneous
  Country: US (occurrence: US)
  Receive Date: 20240905
  Receipt Date: 20250120
  Transmission Date: 20250408
  Serious: No
  Sender: SANOFI AVENTIS
  Company Number: US-SA-2024SA255921

PATIENT
  Age: 32 Year
  Sex: Male

DRUGS (3)
  1. DUPIXENT [Suspect]
     Active Substance: DUPILUMAB
     Indication: Nasal polyps
     Dosage: 300 MG, QW
     Route: 058
     Dates: start: 20240715
  2. DUPIXENT [Suspect]
     Active Substance: DUPILUMAB
     Indication: Eosinophilic oesophagitis
     Dosage: 300 MG, QOW
     Route: 058
  3. DUPIXENT [Suspect]
     Active Substance: DUPILUMAB
     Indication: Asthma

REACTIONS (4)
  - Anosmia [Recovering/Resolving]
  - Rhinorrhoea [Recovering/Resolving]
  - Nasal congestion [Recovering/Resolving]
  - Off label use [Unknown]

NARRATIVE: CASE EVENT DATE: 20240101
